FAERS Safety Report 7561950-0 (Version None)
Quarter: 2011Q2

REPORT INFORMATION
  Report Type: 
  Country: None (occurrence: None)
  Receive Date: 20110621
  Receipt Date: 20110615
  Transmission Date: 20111010
  Serious: Yes (Hospitalization, Disabling, Other)
  Sender: FDA-Public Use
  Company Number: US-MERCK-1003USA01796

PATIENT
  Age: 67 Year
  Sex: Female
  Weight: 66 kg

DRUGS (6)
  1. PRILOSEC [Concomitant]
     Indication: GASTROOESOPHAGEAL REFLUX DISEASE
     Route: 065
  2. FOSAMAX [Suspect]
     Indication: OSTEOPOROSIS
     Route: 048
     Dates: start: 20020101, end: 20091001
  3. ATIVAN [Concomitant]
     Indication: SLEEP DISORDER
     Route: 048
     Dates: start: 20000101
  4. FOSAMAX [Suspect]
     Indication: OSTEOPENIA
     Route: 048
     Dates: start: 20020101, end: 20091001
  5. FOSAMAX [Suspect]
     Route: 048
  6. CORTICOSTEROIDS (UNSPECIFIED) [Concomitant]
     Indication: RHEUMATOID ARTHRITIS
     Route: 048

REACTIONS (26)
  - SPINAL OSTEOARTHRITIS [None]
  - TOOTH FRACTURE [None]
  - RADICULOPATHY [None]
  - HYPERTENSION [None]
  - TOOTH DISORDER [None]
  - QUALITY OF LIFE DECREASED [None]
  - FEMUR FRACTURE [None]
  - SYSTEMIC LUPUS ERYTHEMATOSUS [None]
  - ANXIETY [None]
  - ARTHRITIS [None]
  - BACK PAIN [None]
  - TEMPOROMANDIBULAR JOINT SYNDROME [None]
  - NEPHROPATHY [None]
  - FATIGUE [None]
  - MUSCULOSKELETAL PAIN [None]
  - NOCTURIA [None]
  - OSTEOARTHRITIS [None]
  - CARPAL TUNNEL SYNDROME [None]
  - CHEST PAIN [None]
  - FALL [None]
  - BLOOD CHOLESTEROL INCREASED [None]
  - COLITIS COLLAGENOUS [None]
  - LOW TURNOVER OSTEOPATHY [None]
  - NEUROPATHY PERIPHERAL [None]
  - MUSCULOSKELETAL DISCOMFORT [None]
  - DEPRESSION [None]
